FAERS Safety Report 18060721 (Version 1)
Quarter: 2020Q3

REPORT INFORMATION
  Report Type: Spontaneous
  Country: US (occurrence: US)
  Receive Date: 20200723
  Receipt Date: 20200723
  Transmission Date: 20201103
  Serious: No
  Sender: FDA-Public Use
  Company Number: US-AMGEN-USASP2020116451

PATIENT
  Age: 76 Year
  Sex: Female

DRUGS (2)
  1. KYPROLIS [Suspect]
     Active Substance: CARFILZOMIB
     Dosage: 34 MILLIGRAM
     Route: 065
     Dates: start: 20200610
  2. KYPROLIS [Suspect]
     Active Substance: CARFILZOMIB
     Indication: PRODUCT USED FOR UNKNOWN INDICATION
     Dosage: 44 MILLIGRAM
     Route: 065
     Dates: end: 2020

REACTIONS (3)
  - Blood pressure abnormal [Unknown]
  - Dyspnoea [Unknown]
  - Pulse abnormal [Unknown]

NARRATIVE: CASE EVENT DATE: 2020
